FAERS Safety Report 17372172 (Version 1)
Quarter: 2020Q1

REPORT INFORMATION
  Report Type: Not Available
  Country: US (occurrence: US)
  Receive Date: 20200205
  Receipt Date: 20200205
  Transmission Date: 20200409
  Serious: Yes (Hospitalization, Other)
  Sender: FDA-Public Use
  Company Number: US-AMAG PHARMACEUTICALS, INC.-AMAG201807074

PATIENT
  Age: 34 Year
  Sex: Female

DRUGS (4)
  1. DOXYLAMINE SUCCINATE. [Concomitant]
     Active Substance: DOXYLAMINE SUCCINATE
     Indication: VOMITING
     Dosage: 40 MG, UNK
     Route: 065
  2. MAKENA [Suspect]
     Active Substance: HYDROXYPROGESTERONE CAPROATE
     Indication: PREMATURE BABY
     Dosage: 250 MG/ML, WEEKLY
     Route: 030
     Dates: start: 20180803, end: 20180824
  3. ZOFRAN [Concomitant]
     Active Substance: ONDANSETRON HYDROCHLORIDE
     Indication: VOMITING
     Dosage: 8 MG, UNK
     Route: 065
     Dates: start: 20180629, end: 20180715
  4. REGLAN [Concomitant]
     Active Substance: METOCLOPRAMIDE HYDROCHLORIDE
     Indication: VOMITING
     Dosage: 50 MG, UNK
     Route: 065
     Dates: start: 20180627, end: 20180627

REACTIONS (4)
  - Preterm premature rupture of membranes [Recovered/Resolved]
  - Premature separation of placenta [Recovered/Resolved]
  - Oligohydramnios [Recovered/Resolved]
  - Labour induction [Recovered/Resolved]

NARRATIVE: CASE EVENT DATE: 201808
